FAERS Safety Report 8735880 (Version 2)
Quarter: 2013Q4

REPORT INFORMATION
  Report Type: Report from Study
  Country: US (occurrence: US)
  Receive Date: 20120822
  Receipt Date: 20131101
  Transmission Date: 20140711
  Serious: No
  Sender: FDA-Public Use
  Company Number: US-009507513-1208USA008266

PATIENT
  Sex: Male

DRUGS (5)
  1. VICTRELIS [Suspect]
     Indication: CHRONIC HEPATITIS C
     Dosage: 800 MG, TID
     Dates: start: 20110813
  2. RIBAVIRIN (WARRICK) [Suspect]
     Indication: CHRONIC HEPATITIS C
     Dosage: DIVIDED DOSES (1000 MG, 1 IN 1 D)
     Dates: start: 20100211
  3. RIBAVIRIN (WARRICK) [Suspect]
     Dosage: DIVIDED DOSES (1000 MG, 1 IN 1 D)
     Dates: start: 20110715
  4. PEGINTERFERON ALFA-2A [Suspect]
     Indication: CHRONIC HEPATITIS C
     Dosage: 180 MICROGRAM, QW
     Dates: start: 20100211
  5. PEGINTERFERON ALFA-2A [Suspect]
     Dosage: 180 MICROGRAM, QW
     Dates: start: 20110715

REACTIONS (7)
  - Abdominal pain upper [Unknown]
  - Abdominal pain upper [Unknown]
  - Nasopharyngitis [Unknown]
  - Pyrexia [Unknown]
  - Chills [Unknown]
  - Unevaluable event [Unknown]
  - Cough [Unknown]
